FAERS Safety Report 6443768-5 (Version None)
Quarter: 2009Q4

REPORT INFORMATION
  Report Type: 
  Country: None (occurrence: None)
  Receive Date: 20091117
  Receipt Date: 20091103
  Transmission Date: 20100525
  Serious: Yes (Other)
  Sender: FDA-Public Use
  Company Number: GB-MYLANLABS-2009S1019258

PATIENT
  Age: 71 Year
  Sex: Female

DRUGS (10)
  1. ALLOPURINOL [Suspect]
     Indication: DRUG USE FOR UNKNOWN INDICATION
  2. IRBESARTAN [Interacting]
     Indication: DRUG USE FOR UNKNOWN INDICATION
  3. ASPIRIN [Interacting]
     Indication: DRUG USE FOR UNKNOWN INDICATION
  4. ATENOLOL [Interacting]
     Indication: DRUG USE FOR UNKNOWN INDICATION
  5. BENDROFLUMETHIAZIDE [Interacting]
     Indication: DRUG USE FOR UNKNOWN INDICATION
  6. CLOPIDOGREL [Interacting]
     Indication: DRUG USE FOR UNKNOWN INDICATION
  7. DOXAZOSIN [Interacting]
     Indication: DRUG USE FOR UNKNOWN INDICATION
  8. GLICLAZIDE [Interacting]
     Indication: DIABETES MELLITUS
  9. METFORMIN HCL [Interacting]
     Indication: DIABETES MELLITUS
  10. PERINDOPRIL [Interacting]
     Indication: DRUG USE FOR UNKNOWN INDICATION

REACTIONS (4)
  - DRUG INTERACTION [None]
  - HYPOGLYCAEMIA [None]
  - LACTIC ACIDOSIS [None]
  - RENAL FAILURE ACUTE [None]
